FAERS Safety Report 25654068 (Version 1)
Quarter: 2025Q3

REPORT INFORMATION
  Report Type: Spontaneous
  Country: US (occurrence: US)
  Receive Date: 20250807
  Receipt Date: 20250807
  Transmission Date: 20251020
  Serious: Yes (Death, Hospitalization)
  Sender: MYLAN
  Company Number: US-MYLANLABS-2025M1065704

PATIENT
  Age: 67 Year
  Sex: Female

DRUGS (4)
  1. NOREPINEPHRINE [Suspect]
     Active Substance: NOREPINEPHRINE
     Indication: Vasopressive therapy
  2. EPINEPHRINE [Suspect]
     Active Substance: EPINEPHRINE
     Indication: Vasopressive therapy
  3. DOBUTAMINE [Suspect]
     Active Substance: DOBUTAMINE HYDROCHLORIDE
     Indication: Drug therapy
  4. VASOPRESSIN [Suspect]
     Active Substance: VASOPRESSIN
     Indication: Vasopressive therapy

REACTIONS (1)
  - Drug ineffective [Fatal]
